FAERS Safety Report 6958228-2 (Version None)
Quarter: 2010Q3

REPORT INFORMATION
  Report Type: 
  Country: None (occurrence: None)
  Receive Date: 20100830
  Receipt Date: 20100830
  Transmission Date: 20110219
  Serious: Yes (Hospitalization)
  Sender: FDA-Public Use
  Company Number: None

PATIENT
  Sex: Female
  Weight: 66.6788 kg

DRUGS (2)
  1. COLISTIMETHATE SODIUM [Suspect]
     Indication: BACTERAEMIA
     Dosage: 150 MG Q12H IV
     Route: 042
     Dates: start: 20100707
  2. COLISTIMETHATE SODIUM [Suspect]
     Indication: CELLULITIS
     Dosage: 150 MG Q12H IV
     Route: 042
     Dates: start: 20100707

REACTIONS (2)
  - HAEMODIALYSIS [None]
  - RENAL FAILURE ACUTE [None]
